FAERS Safety Report 10221085 (Version 2)
Quarter: 2016Q2

REPORT INFORMATION
  Report Type: Spontaneous
  Country: US (occurrence: US)
  Receive Date: 20140604
  Receipt Date: 20160512
  Transmission Date: 20160815
  Serious: Yes (Hospitalization)
  Sender: FDA-Public Use
  Company Number: 2014P1004735

PATIENT
  Age: 64 Year
  Sex: Male

DRUGS (3)
  1. INFUMORPH [Suspect]
     Active Substance: MORPHINE SULFATE
     Route: 037
     Dates: start: 20140515
  2. INFUMORPH [Suspect]
     Active Substance: MORPHINE SULFATE
     Indication: PAIN
     Route: 037
     Dates: start: 20140514
  3. FLOMAX [Concomitant]
     Active Substance: TAMSULOSIN HYDROCHLORIDE
     Indication: PRODUCT USED FOR UNKNOWN INDICATION
     Route: 048

REACTIONS (12)
  - Catheter site erosion [Unknown]
  - Vomiting [Recovered/Resolved]
  - Photophobia [Unknown]
  - Cerebrospinal fluid leakage [Recovered/Resolved]
  - Urinary retention [Recovered/Resolved]
  - Headache [Recovered/Resolved]
  - Wound infection [Unknown]
  - Catheter site induration [Unknown]
  - Catheter site swelling [Unknown]
  - Catheter site vesicles [Unknown]
  - Catheter site erythema [Recovering/Resolving]
  - Nausea [Recovered/Resolved]

NARRATIVE: CASE EVENT DATE: 201405
